FAERS Safety Report 6424777-9 (Version None)
Quarter: 2009Q4

REPORT INFORMATION
  Report Type: 
  Country: None (occurrence: None)
  Receive Date: 20091029
  Receipt Date: 20080916
  Transmission Date: 20100525
  Serious: Yes (Hospitalization, Other)
  Sender: FDA-Public Use
  Company Number: 177562USA

PATIENT
  Age: 74 Year
  Sex: Female

DRUGS (5)
  1. PACLITAXEL [Suspect]
     Indication: BREAST CANCER METASTATIC
     Dosage: 154 MG, INTRAVENOUS
     Route: 042
     Dates: start: 20060329
  2. VINORELBINE [Suspect]
     Indication: BREAST CANCER METASTATIC
     Dosage: INTRAVENOUS (NOT OTHERWISE SPECIFIED)
     Route: 042
     Dates: start: 20060329
  3. FILGRASTIM [Suspect]
     Indication: CHEMOTHERAPY
     Dosage: 300 MCG, INTRAVENOUS
     Route: 042
     Dates: start: 20060330, end: 20060614
  4. DARBEPOETIN ALFA [Concomitant]
  5. POTASSIUM [Concomitant]

REACTIONS (3)
  - ANAEMIA [None]
  - DYSPNOEA [None]
  - PNEUMONITIS [None]
